FAERS Safety Report 23070234 (Version 1)
Quarter: 2023Q4

REPORT INFORMATION
  Report Type: Spontaneous
  Country: US (occurrence: US)
  Receive Date: 20231016
  Receipt Date: 20231016
  Transmission Date: 20240109
  Serious: No
  Sender: FDA-Public Use
  Company Number: US-BRISTOL-MYERS SQUIBB COMPANY-2023-135086

PATIENT
  Age: 67 Year
  Sex: Female

DRUGS (3)
  1. SPRYCEL [Suspect]
     Active Substance: DASATINIB
     Indication: Chronic myeloid leukaemia
     Dosage: DOSE : UNKNOWN;     FREQ : DAILY
     Route: 048
  2. VUMERITY [Concomitant]
     Active Substance: DIROXIMEL FUMARATE
     Indication: Product used for unknown indication
  3. COPAXONE [Concomitant]
     Active Substance: GLATIRAMER ACETATE
     Indication: Product used for unknown indication

REACTIONS (1)
  - Product dose omission issue [Unknown]
